FAERS Safety Report 23521780 (Version 1)
Quarter: 2024Q1

REPORT INFORMATION
  Report Type: Spontaneous
  Country: US (occurrence: US)
  Receive Date: 20240214
  Receipt Date: 20240214
  Transmission Date: 20240409
  Serious: Yes (Other)
  Sender: FDA-Public Use
  Company Number: US-Crown Laboratories, Inc.-2153140

PATIENT
  Sex: Female

DRUGS (1)
  1. ZEASORB [Suspect]
     Active Substance: MICONAZOLE NITRATE

REACTIONS (1)
  - Asthma [Unknown]

NARRATIVE: CASE EVENT DATE: 20240131
